FAERS Safety Report 7011672-X (Version None)
Quarter: 2010Q3

REPORT INFORMATION
  Report Type: 
  Country: None (occurrence: None)
  Receive Date: 20100923
  Receipt Date: 20090513
  Transmission Date: 20110219
  Serious: No
  Sender: FDA-Public Use
  Company Number: US-WYE-H09360709

PATIENT
  Sex: Female
  Weight: 56.75 kg

DRUGS (2)
  1. PREMARIN [Suspect]
     Dosage: 1.25 MG; UNSPECIFIED FREQUENCY
     Route: 048
     Dates: start: 20090401
  2. PREMARIN [Suspect]
     Dosage: 1.25MG TABLET CUT IN HALF; UNSPECIFIED FREQUENCY
     Route: 048
     Dates: start: 20090501

REACTIONS (2)
  - BREAST TENDERNESS [None]
  - WRONG TECHNIQUE IN DRUG USAGE PROCESS [None]
